FAERS Safety Report 17038258 (Version 6)
Quarter: 2020Q4

REPORT INFORMATION
  Report Type: Spontaneous
  Country: US (occurrence: US)
  Receive Date: 20191115
  Receipt Date: 20201124
  Transmission Date: 20210113
  Serious: Yes (Hospitalization, Other)
  Sender: FDA-Public Use
  Company Number: US-ASTRAZENECA-2019SF60246

PATIENT
  Age: 21911 Day
  Sex: Female
  Weight: 141.7 kg

DRUGS (99)
  1. TRESIBA [Concomitant]
     Active Substance: INSULIN DEGLUDEC
  2. TRIAMCINOLONE [Concomitant]
     Active Substance: TRIAMCINOLONE
  3. DOCUSATE [Concomitant]
     Active Substance: DOCUSATE
  4. PHENOBARBITAL. [Concomitant]
     Active Substance: PHENOBARBITAL
     Dates: start: 20120220
  5. HYDROCHLOROTHIAZIDE. [Concomitant]
     Active Substance: HYDROCHLOROTHIAZIDE
  6. LORTAB [Concomitant]
     Active Substance: ACETAMINOPHEN\HYDROCODONE BITARTRATE
  7. LEVEMIR [Concomitant]
     Active Substance: INSULIN DETEMIR
  8. HEPARIN [Concomitant]
     Active Substance: HEPARIN SODIUM
  9. MIDAZOLAM. [Concomitant]
     Active Substance: MIDAZOLAM
  10. ZOLOFT [Concomitant]
     Active Substance: SERTRALINE HYDROCHLORIDE
  11. NYSTATIN. [Concomitant]
     Active Substance: NYSTATIN
  12. DULAGLUTIDE. [Concomitant]
     Active Substance: DULAGLUTIDE
  13. SODIUM BICARBONATE. [Concomitant]
     Active Substance: SODIUM BICARBONATE
  14. FUROSEMIDE. [Concomitant]
     Active Substance: FUROSEMIDE
  15. OXYCODONE-ACETAMIIN [Concomitant]
  16. ERTAPENEM. [Concomitant]
     Active Substance: ERTAPENEM SODIUM
  17. METRONIDAZOILE [Concomitant]
  18. METOCLOPRAMIDE. [Concomitant]
     Active Substance: METOCLOPRAMIDE
  19. AZITHROMYCIN ANHYDROUS. [Concomitant]
     Active Substance: AZITHROMYCIN ANHYDROUS
  20. VASOPRESSIN. [Concomitant]
     Active Substance: VASOPRESSIN
  21. VANCOMYCIN [Concomitant]
     Active Substance: VANCOMYCIN
  22. SEVOFLURANE. [Concomitant]
     Active Substance: SEVOFLURANE
  23. METOPROLOL TARTRATE. [Concomitant]
     Active Substance: METOPROLOL TARTRATE
  24. SODIUM CHLORIDE. [Concomitant]
     Active Substance: SODIUM CHLORIDE
  25. DOXYCYCLINE HYCLATE. [Concomitant]
     Active Substance: DOXYCYCLINE HYCLATE
  26. HYDROXYZINE HCL [Concomitant]
     Active Substance: HYDROXYZINE HYDROCHLORIDE
  27. ASPIRIN. [Concomitant]
     Active Substance: ASPIRIN
  28. TRADJENTA [Concomitant]
     Active Substance: LINAGLIPTIN
  29. ZOCOR [Concomitant]
     Active Substance: SIMVASTATIN
     Dates: start: 20120228
  30. NEXIUM [Concomitant]
     Active Substance: ESOMEPRAZOLE MAGNESIUM
  31. FARXIGA [Suspect]
     Active Substance: DAPAGLIFLOZIN PROPANEDIOL
     Indication: TYPE 2 DIABETES MELLITUS
     Route: 048
     Dates: start: 201705, end: 201801
  32. LIDOCAINE. [Concomitant]
     Active Substance: LIDOCAINE
  33. ISOFLURANE. [Concomitant]
     Active Substance: ISOFLURANE
  34. MERREM [Concomitant]
     Active Substance: MEROPENEM
  35. ZYVOX [Concomitant]
     Active Substance: LINEZOLID
  36. HYDROMORPHONE [Concomitant]
     Active Substance: HYDROMORPHONE
  37. FLUNISOLDE [Concomitant]
  38. SERTRALINE [Concomitant]
     Active Substance: SERTRALINE HYDROCHLORIDE
  39. SUGAMMADEX [Concomitant]
     Active Substance: SUGAMMADEX
  40. LISINOPRIL. [Concomitant]
     Active Substance: LISINOPRIL
  41. ONGLYZA [Concomitant]
     Active Substance: SAXAGLIPTIN HYDROCHLORIDE
  42. CITALOPRAM [Concomitant]
     Active Substance: CITALOPRAM HYDROBROMIDE
  43. VOLTAREN [Concomitant]
     Active Substance: DICLOFENAC SODIUM
     Dates: start: 20120220
  44. VICTOZA [Concomitant]
     Active Substance: LIRAGLUTIDE
  45. CINNAMON. [Concomitant]
     Active Substance: CINNAMON
  46. MORPHINE [Concomitant]
     Active Substance: MORPHINE
  47. VECURONIUM [Concomitant]
     Active Substance: VECURONIUM BROMIDE
  48. PROTONIX [Concomitant]
     Active Substance: PANTOPRAZOLE SODIUM
  49. ZOSYN [Concomitant]
     Active Substance: PIPERACILLIN SODIUM\TAZOBACTAM SODIUM
  50. HYDRALAZINE [Concomitant]
     Active Substance: HYDRALAZINE HYDROCHLORIDE
  51. CLINDAMYCIN. [Concomitant]
     Active Substance: CLINDAMYCIN
  52. CEFAZOLIN [Concomitant]
     Active Substance: CEFAZOLIN
  53. EPHEDRINE. [Concomitant]
     Active Substance: EPHEDRINE
  54. ATORVASTATIN [Concomitant]
     Active Substance: ATORVASTATIN
  55. ISOSORBIDE MONONITRATE. [Concomitant]
     Active Substance: ISOSORBIDE MONONITRATE
  56. WELLBUTRIN [Concomitant]
     Active Substance: BUPROPION HYDROCHLORIDE
  57. FARXIGA [Suspect]
     Active Substance: DAPAGLIFLOZIN PROPANEDIOL
     Indication: BLOOD PRESSURE DECREASED
     Route: 048
     Dates: start: 201705, end: 201801
  58. PHENYLEPHRINE [Concomitant]
     Active Substance: PHENYLEPHRINE HYDROCHLORIDE
  59. GLUCAGON. [Concomitant]
     Active Substance: GLUCAGON
  60. DUONEB [Concomitant]
     Active Substance: ALBUTEROL SULFATE\IPRATROPIUM BROMIDE
  61. OMEPRAZOLE. [Concomitant]
     Active Substance: OMEPRAZOLE
  62. ONDANSETRON [Concomitant]
     Active Substance: ONDANSETRON
  63. LACTATED RINGERS SOLUTION [Concomitant]
     Active Substance: CALCIUM CHLORIDE\POTASSIUM CHLORIDE\SODIUM CHLORIDE\SODIUM LACTATE
  64. PIOGLITAZONE HCL [Concomitant]
     Active Substance: PIOGLITAZONE
  65. VITAMIN D2 [Concomitant]
     Active Substance: ERGOCALCIFEROL
  66. SCOPOLAMINE HYDROBROMIDE. [Concomitant]
     Active Substance: SCOPOLAMINE HYDROBROMIDE
     Dates: start: 20120220
  67. FISH OIL [Concomitant]
     Active Substance: FISH OIL
  68. ROCURONIUM [Concomitant]
     Active Substance: ROCURONIUM BROMIDE
  69. POLYETHYLENE GLYCOL [Concomitant]
     Active Substance: POLYETHYLENE GLYCOLS
  70. LACTATE [Concomitant]
  71. PHOSPHORUS [Concomitant]
     Active Substance: PHOSPHORUS
  72. GABAPENTIN. [Concomitant]
     Active Substance: GABAPENTIN
  73. CEFDINIR. [Concomitant]
     Active Substance: CEFDINIR
  74. LEVOCETIRIZINE [Concomitant]
     Active Substance: LEVOCETIRIZINE
  75. PROMETHAZINE [Concomitant]
     Active Substance: PROMETHAZINE HYDROCHLORIDE
  76. NEOSPORIN [Concomitant]
     Active Substance: BACITRACIN ZINC\NEOMYCIN SULFATE\POLYMYXIN B SULFATE
  77. ATROPINE SULFATE. [Concomitant]
     Active Substance: ATROPINE SULFATE
     Dates: start: 20120220
  78. PROPOFOL. [Concomitant]
     Active Substance: PROPOFOL
  79. NOREPINEPHRINE. [Concomitant]
     Active Substance: NOREPINEPHRINE
  80. JANUVIA [Concomitant]
     Active Substance: SITAGLIPTIN PHOSPHATE
  81. CALCIUM CARBONATE. [Concomitant]
     Active Substance: CALCIUM CARBONATE
  82. METFORMIN HCL [Concomitant]
     Active Substance: METFORMIN HYDROCHLORIDE
  83. AMOX-CLAV [Concomitant]
     Active Substance: AMOXICILLIN\CLAVULANATE POTASSIUM
  84. DICLOFENAC SODIUM. [Concomitant]
     Active Substance: DICLOFENAC SODIUM
  85. FARXIGA [Suspect]
     Active Substance: DAPAGLIFLOZIN PROPANEDIOL
     Indication: WEIGHT DECREASED
     Route: 048
     Dates: start: 201705, end: 201801
  86. TYLENOL [Concomitant]
     Active Substance: ACETAMINOPHEN
  87. SUCCINYLCHOLINE [Concomitant]
     Active Substance: SUCCINYLCHOLINE
  88. FENTANYL. [Concomitant]
     Active Substance: FENTANYL
  89. SENNA [Concomitant]
     Active Substance: SENNA LEAF\SENNOSIDES\SENNOSIDES A AND B
  90. NORVASC [Concomitant]
     Active Substance: AMLODIPINE BESYLATE
  91. MAGNESIUM [Concomitant]
     Active Substance: MAGNESIUM
  92. GLUCONATE [Concomitant]
  93. FLUCONAZOLE. [Concomitant]
     Active Substance: FLUCONAZOLE
  94. GLYCOPYRROLATE. [Concomitant]
     Active Substance: GLYCOPYRROLATE
  95. DESFLURANE. [Concomitant]
     Active Substance: DESFLURANE
  96. TROPONIN [Concomitant]
  97. NITROGLYCERIN. [Concomitant]
     Active Substance: NITROGLYCERIN
  98. LOSARTAN POTASSIUM. [Concomitant]
     Active Substance: LOSARTAN POTASSIUM
  99. MUPIROCIN. [Concomitant]
     Active Substance: MUPIROCIN

REACTIONS (13)
  - Perineal abscess [Unknown]
  - Acute kidney injury [Unknown]
  - Urinary tract infection [Unknown]
  - Perirectal abscess [Unknown]
  - Chronic kidney disease [Unknown]
  - Abscess limb [Unknown]
  - Fournier^s gangrene [Unknown]
  - Cholecystitis acute [Unknown]
  - Cholecystitis infective [Unknown]
  - Renal tubular necrosis [Unknown]
  - Necrotising soft tissue infection [Unknown]
  - Clostridial sepsis [Unknown]
  - Renal failure [Unknown]

NARRATIVE: CASE EVENT DATE: 20180112
